FAERS Safety Report 5019410-7 (Version None)
Quarter: 2006Q2

REPORT INFORMATION
  Report Type: 
  Country: None (occurrence: None)
  Receive Date: 20060606
  Receipt Date: 20060601
  Transmission Date: 20061013
  Serious: Yes (Death, Hospitalization, Other)
  Sender: FDA-Public Use
  Company Number: 2006UW10516

PATIENT
  Age: 72 Year
  Sex: Male
  Weight: 82 kg

DRUGS (7)
  1. ATENOLOL [Suspect]
     Indication: HYPERTENSION
     Dates: end: 20050711
  2. LISINOPRIL [Suspect]
     Indication: HYPERTENSION
     Dates: end: 20050711
  3. TEMOZOLOMIDE [Suspect]
     Indication: METASTATIC MALIGNANT MELANOMA
     Dosage: CUMULATIVE DOSE OF 7800 MG
     Route: 048
     Dates: start: 20050525, end: 20050710
  4. AMLODIPINE [Suspect]
     Indication: HYPERTENSION
     Dates: end: 20050711
  5. ASPIRIN [Concomitant]
  6. ATORVASTATIN CALCIUM [Concomitant]
  7. FLUCONAZOLE [Concomitant]
     Dates: start: 20050706, end: 20050711

REACTIONS (3)
  - DISEASE PROGRESSION [None]
  - HAEMATEMESIS [None]
  - ORTHOSTATIC HYPOTENSION [None]
